FAERS Safety Report 21286155 (Version 2)
Quarter: 2022Q3

REPORT INFORMATION
  Report Type: Report from Study
  Country: US (occurrence: US)
  Receive Date: 20220902
  Receipt Date: 20220923
  Transmission Date: 20221027
  Serious: Yes (Hospitalization)
  Sender: FDA-Public Use
  Company Number: US-GLAXOSMITHKLINE-US2022GSK120867

PATIENT
  Age: 69 Year
  Sex: Male
  Weight: 64.2 kg

DRUGS (6)
  1. NIRAPARIB [Suspect]
     Active Substance: NIRAPARIB
     Indication: Breast cancer
     Dosage: UNK
     Route: 048
  2. NIRAPARIB [Suspect]
     Active Substance: NIRAPARIB
     Indication: Ovarian cancer
     Dosage: 200 MG, QD
     Route: 048
     Dates: start: 20220816, end: 20220909
  3. NIRAPARIB [Suspect]
     Active Substance: NIRAPARIB
     Indication: Pancreatic carcinoma
  4. DOSTARLIMAB [Suspect]
     Active Substance: DOSTARLIMAB
     Indication: Breast cancer
     Dosage: UNK
     Route: 042
  5. DOSTARLIMAB [Suspect]
     Active Substance: DOSTARLIMAB
     Indication: Ovarian cancer
     Dosage: 1000 MG, Z (Q6 WEEKS)
     Route: 042
     Dates: start: 20220713, end: 20220713
  6. DOSTARLIMAB [Suspect]
     Active Substance: DOSTARLIMAB
     Indication: Pancreatic carcinoma
     Dosage: 1000 MG, Z (Q6 WEEKS)
     Route: 042
     Dates: start: 20220909, end: 20220909

REACTIONS (1)
  - Obstruction gastric [Recovered/Resolved]

NARRATIVE: CASE EVENT DATE: 20220817
